FAERS Safety Report 4772502-X (Version None)
Quarter: 2005Q3

REPORT INFORMATION
  Report Type: 
  Country: None (occurrence: None)
  Receive Date: 20050919
  Receipt Date: 20050913
  Transmission Date: 20060218
  Serious: Yes (Life-Threatening, Hospitalization)
  Sender: FDA-Public Use
  Company Number: 2005SE05171

PATIENT
  Age: 11033 Day
  Sex: Male

DRUGS (23)
  1. SEROQUEL [Suspect]
     Indication: SCHIZOPHRENIA, PARANOID TYPE
     Route: 048
     Dates: start: 20050809, end: 20050810
  2. SEROQUEL [Suspect]
     Indication: ALCOHOLISM
     Route: 048
     Dates: start: 20050809, end: 20050810
  3. SEROQUEL [Suspect]
     Route: 048
     Dates: start: 20050811, end: 20050812
  4. SEROQUEL [Suspect]
     Route: 048
     Dates: start: 20050811, end: 20050812
  5. SEROQUEL [Suspect]
     Route: 048
     Dates: start: 20050813, end: 20050904
  6. SEROQUEL [Suspect]
     Route: 048
     Dates: start: 20050813, end: 20050904
  7. SEROQUEL [Suspect]
     Route: 048
     Dates: start: 20050905
  8. SEROQUEL [Suspect]
     Route: 048
     Dates: start: 20050905
  9. TRILAFON [Suspect]
     Indication: SCHIZOPHRENIA, PARANOID TYPE
     Route: 048
     Dates: start: 20030917
  10. TRILAFON [Suspect]
     Indication: ALCOHOLISM
     Route: 048
     Dates: start: 20030917
  11. TRILAFON [Suspect]
     Dosage: 8+8+24 MG DAILY
     Route: 048
     Dates: start: 20050809, end: 20050904
  12. TRILAFON [Suspect]
     Dosage: 8+8+24 MG DAILY
     Route: 048
     Dates: start: 20050809, end: 20050904
  13. TRILAFON [Suspect]
     Dosage: 8+8+16 MG DAILY
     Route: 048
     Dates: start: 20050905, end: 20050909
  14. TRILAFON [Suspect]
     Dosage: 8+8+16 MG DAILY
     Route: 048
     Dates: start: 20050905, end: 20050909
  15. TRILAFON [Suspect]
     Dosage: 8+16 MG DAILY
     Route: 048
     Dates: start: 20050910
  16. TRILAFON [Suspect]
     Dosage: 8+16 MG DAILY
     Route: 048
     Dates: start: 20050910
  17. TRILAFON [Suspect]
     Dates: start: 20050809
  18. TRILAFON [Suspect]
     Dates: start: 20050809
  19. NOZINAN [Concomitant]
     Dosage: ACTUAL MEDICAL STATUS THAT DAY, NOT NECESSARILY START DATE
     Route: 048
     Dates: start: 20050809
  20. NOZINAN [Concomitant]
     Dosage: 25-50 MG, MAXIMUM X2
     Route: 048
     Dates: start: 20050809
  21. IMOVANE [Concomitant]
     Dosage: ACTUAL MEDICAL STATUS THAT DAY, NOT NECESSARILY START DATE
     Route: 048
     Dates: start: 20050809
  22. LYSANTIN [Concomitant]
     Indication: PROPHYLAXIS
     Dosage: ACTUAL MEDICAL STATUS THAT DAY, NOT NECESSARILY START DATE
     Route: 048
     Dates: start: 20050809
  23. CIPRALEX [Concomitant]
     Dates: start: 20050809

REACTIONS (1)
  - MYOCARDIAL INFARCTION [None]
